FAERS Safety Report 9332878 (Version 2)
Quarter: 2013Q2

REPORT INFORMATION
  Report Type: Spontaneous
  Country: IT (occurrence: IT)
  Receive Date: 20130606
  Receipt Date: 20130614
  Transmission Date: 20140414
  Serious: Yes (Hospitalization)
  Sender: FDA-Public Use
  Company Number: IT-BRISTOL-MYERS SQUIBB COMPANY-18976704

PATIENT
  Age: 74 Year
  Sex: Female

DRUGS (10)
  1. COUMADIN TABS 5 MG [Suspect]
     Indication: THROMBOSIS PROPHYLAXIS
     Route: 048
     Dates: start: 20130101, end: 20130304
  2. CARDIOASPIRIN [Suspect]
     Indication: THROMBOSIS PROPHYLAXIS
     Dosage: 100MG TABS
     Route: 048
     Dates: start: 20130101, end: 20130304
  3. FUROSEMIDE [Concomitant]
     Route: 048
  4. ROSUVASTATIN CALCIUM [Concomitant]
     Indication: HYPERCHOLESTEROLAEMIA
     Route: 048
  5. RAMIPRIL [Concomitant]
     Indication: HYPERTENSION
     Route: 048
  6. INSULIN GLARGINE [Concomitant]
     Route: 058
  7. LERCANIDIPINE HCL [Concomitant]
     Route: 048
  8. ACTRAPID [Concomitant]
     Dosage: 1 DF=100 IU/ML INJECTION SOLUTION
     Route: 058
  9. LASITONE [Concomitant]
     Dosage: 1 DF=25+37 MG CAPS
     Route: 048
  10. SEACOR [Concomitant]
     Dosage: 1 GR CAPS
     Route: 048

REACTIONS (2)
  - Haematemesis [Recovering/Resolving]
  - Oesophageal ulcer [Recovering/Resolving]
